FAERS Safety Report 5867289-3 (Version None)
Quarter: 2008Q3

REPORT INFORMATION
  Report Type: 
  Country: None (occurrence: None)
  Receive Date: 20080902
  Receipt Date: 20080818
  Transmission Date: 20090109
  Serious: Yes (Other)
  Sender: FDA-Public Use
  Company Number: PHHY2008GB18701

PATIENT
  Age: 25 Year
  Sex: Female

DRUGS (5)
  1. TEGRETOL [Suspect]
     Dosage: 600 MG, BID
  2. TEGRETOL [Suspect]
  3. LAMOTRIGINE [Suspect]
     Dosage: 125 MG, BID
  4. PHENYTOIN [Suspect]
     Indication: GRAND MAL CONVULSION
     Dosage: 100 MG, TID
     Route: 048
     Dates: start: 20080803, end: 20080807
  5. ZONISAMIDE [Suspect]
     Dosage: 150 MG, BID

REACTIONS (2)
  - CONVULSION [None]
  - DRUG INTERACTION [None]
